FAERS Safety Report 17006797 (Version 1)
Quarter: 2019Q4

REPORT INFORMATION
  Report Type: Spontaneous
  Country: US (occurrence: US)
  Receive Date: 20191107
  Receipt Date: 20191107
  Transmission Date: 20200122
  Serious: Yes (Other)
  Sender: FDA-Public Use
  Company Number: US-JNJFOC-20191102588

PATIENT
  Age: 76 Year
  Sex: Male
  Weight: 78.9 kg

DRUGS (2)
  1. DARZALEX [Suspect]
     Active Substance: DARATUMUMAB
     Dosage: 3 VIALS.
     Route: 042
  2. DARZALEX [Suspect]
     Active Substance: DARATUMUMAB
     Indication: PLASMA CELL MYELOMA
     Dosage: 3 VIALS.
     Route: 042

REACTIONS (3)
  - Fatigue [Unknown]
  - Proctalgia [Unknown]
  - Haematochezia [Unknown]

NARRATIVE: CASE EVENT DATE: 20190520
